FAERS Safety Report 9631509 (Version 2)
Quarter: 2014Q1

REPORT INFORMATION
  Report Type: Spontaneous
  Country: US (occurrence: US)
  Receive Date: 20131018
  Receipt Date: 20140116
  Transmission Date: 20141002
  Serious: No
  Sender: FDA-Public Use
  Company Number: US-PFIZER INC-2013295785

PATIENT
  Age: 75 Year
  Sex: Male

DRUGS (8)
  1. DILANTIN-125 [Suspect]
     Dosage: UNK
  2. NEURONTIN [Suspect]
     Dosage: UNK
  3. BACTRIM [Suspect]
     Dosage: UNK
  4. TRENTAL ^ALBERT-ROUSSEL^ [Suspect]
     Dosage: UNK
  5. CIPRO ^BAYER^ [Suspect]
     Dosage: UNK
  6. BIAXIN [Suspect]
     Dosage: UNK
  7. EES [Suspect]
     Dosage: UNK
  8. DOXYLAMINE [Suspect]
     Dosage: UNK

REACTIONS (1)
  - Drug hypersensitivity [Unknown]
